FAERS Safety Report 6031769-0 (Version None)
Quarter: 2009Q1

REPORT INFORMATION
  Report Type: 
  Country: None (occurrence: None)
  Receive Date: 20090108
  Receipt Date: 20090105
  Transmission Date: 20090719
  Serious: Yes (Hospitalization)
  Sender: FDA-Public Use
  Company Number: US-MERCK-0901USA00179

PATIENT
  Age: 78 Year
  Sex: Male

DRUGS (3)
  1. VYTORIN [Suspect]
     Indication: HYPERCHOLESTEROLAEMIA
     Route: 048
     Dates: start: 20050401, end: 20081201
  2. VYTORIN [Suspect]
     Route: 048
     Dates: start: 20081201, end: 20081201
  3. COUMADIN [Concomitant]
     Route: 065

REACTIONS (3)
  - ARTHRALGIA [None]
  - MYALGIA [None]
  - PNEUMONIA [None]
